FAERS Safety Report 21813173 (Version 1)
Quarter: 2023Q1

REPORT INFORMATION
  Report Type: Spontaneous
  Country: CA (occurrence: CA)
  Receive Date: 20230103
  Receipt Date: 20230103
  Transmission Date: 20230418
  Serious: Yes (Hospitalization)
  Sender: FDA-Public Use
  Company Number: CA-FreseniusKabi-FK202218504

PATIENT
  Age: 2 Year
  Sex: Female
  Weight: 10.6 kg

DRUGS (1)
  1. PIPERACILLIN SODIUM\TAZOBACTAM SODIUM [Suspect]
     Active Substance: PIPERACILLIN SODIUM\TAZOBACTAM SODIUM
     Indication: Product used for unknown indication
     Dosage: 600 MG
     Route: 042

REACTIONS (6)
  - Tachycardia [Recovered/Resolved]
  - Lip exfoliation [Recovered/Resolved]
  - Drug eruption [Recovered/Resolved]
  - Rash erythematous [Recovered/Resolved]
  - Skin exfoliation [Recovered/Resolved]
  - Type IV hypersensitivity reaction [Recovered/Resolved]
